FAERS Safety Report 7526043-7 (Version None)
Quarter: 2011Q2

REPORT INFORMATION
  Report Type: 
  Country: None (occurrence: None)
  Receive Date: 20110526
  Receipt Date: 20110509
  Transmission Date: 20111010
  Serious: Yes (Other)
  Sender: FDA-Public Use
  Company Number: 2011AP000955

PATIENT
  Age: 5 Year
  Sex: Male

DRUGS (3)
  1. LAMOTRIGINE [Suspect]
     Indication: PRODUCT USED FOR UNKNOWN INDICATION
  2. VALPROIC ACID [Suspect]
     Indication: PRODUCT USED FOR UNKNOWN INDICATION
  3. CLOBAZAM (CLOBAZAM) [Suspect]
     Indication: PRODUCT USED FOR UNKNOWN INDICATION

REACTIONS (8)
  - STATUS EPILEPTICUS [None]
  - DYSTONIA [None]
  - CEREBRAL ATROPHY [None]
  - BRAIN OEDEMA [None]
  - HYPOXIC-ISCHAEMIC ENCEPHALOPATHY [None]
  - PNEUMONIA MYCOPLASMAL [None]
  - LEARNING DISORDER [None]
  - FEBRILE CONVULSION [None]
